FAERS Safety Report 7974153-2 (Version None)
Quarter: 2011Q4

REPORT INFORMATION
  Report Type: 
  Country: None (occurrence: None)
  Receive Date: 20111213
  Receipt Date: 20111212
  Transmission Date: 20120403
  Serious: No
  Sender: FDA-Public Use
  Company Number: US-PFIZER INC-2011204121

PATIENT
  Sex: Female

DRUGS (1)
  1. NIFEDIPINE [Suspect]
     Dosage: UNK

REACTIONS (4)
  - RHINORRHOEA [None]
  - DRUG INEFFECTIVE [None]
  - SINUS DISORDER [None]
  - PERIPHERAL COLDNESS [None]
